FAERS Safety Report 16425800 (Version 1)
Quarter: 2019Q2

REPORT INFORMATION
  Report Type: Spontaneous
  Country: US (occurrence: US)
  Receive Date: 20190506
  Receipt Date: 20190506
  Transmission Date: 20190711
  Serious: Yes (Hospitalization)
  Sender: FDA-Public Use
  Company Number: None

PATIENT
  Age: 58 Year
  Sex: Male

DRUGS (3)
  1. CLOTRIMAZOLE. [Concomitant]
     Active Substance: CLOTRIMAZOLE
  2. TACROLIMUS. [Concomitant]
     Active Substance: TACROLIMUS
  3. MYCOPHENOLIC 180 MG TAB [Suspect]
     Active Substance: MYCOPHENOLIC ACID
     Indication: RENAL TRANSPLANT
     Route: 048
     Dates: start: 20190302

REACTIONS (2)
  - Hospitalisation [None]
  - Intentional product use issue [None]

NARRATIVE: CASE EVENT DATE: 201904
